FAERS Safety Report 18400465 (Version 1)
Quarter: 2020Q4

REPORT INFORMATION
  Report Type: Spontaneous
  Country: JP (occurrence: JP)
  Receive Date: 20201019
  Receipt Date: 20201019
  Transmission Date: 20210114
  Serious: Yes (Other)
  Sender: FDA-Public Use
  Company Number: JP-PFIZER INC-2020397888

PATIENT
  Sex: Male

DRUGS (2)
  1. MEROPENEM. [Suspect]
     Active Substance: MEROPENEM
     Indication: PNEUMONIA
     Dosage: 1.5 G, DAILY
     Dates: start: 20190902, end: 20190905
  2. GABEXATE [Suspect]
     Active Substance: GABEXATE
     Indication: PANCREATITIS
     Dosage: 400 MG, DAILY
     Dates: start: 20190902, end: 20190905

REACTIONS (2)
  - Drug resistance [Unknown]
  - Hyperkalaemia [Unknown]

NARRATIVE: CASE EVENT DATE: 201909
